FAERS Safety Report 16068031 (Version 1)
Quarter: 2019Q1

REPORT INFORMATION
  Report Type: Spontaneous
  Country: CA (occurrence: CA)
  Receive Date: 20190313
  Receipt Date: 20190313
  Transmission Date: 20190418
  Serious: Yes (Other)
  Sender: FDA-Public Use
  Company Number: CA-PFIZER INC-2019108042

PATIENT
  Age: 15 Year
  Sex: Female
  Weight: 53 kg

DRUGS (7)
  1. DOXORUBICIN [Concomitant]
     Active Substance: DOXORUBICIN
     Dosage: UNK
  2. BLEOMYCIN SULFATE [Suspect]
     Active Substance: BLEOMYCIN SULFATE
     Dosage: 7.6 IU, UNK
     Route: 042
  3. ADRIAMYCIN [Concomitant]
     Active Substance: DOXORUBICIN HYDROCHLORIDE
     Dosage: UNK
  4. BLEOMYCIN SULFATE [Suspect]
     Active Substance: BLEOMYCIN SULFATE
     Indication: HODGKIN^S DISEASE
     Dosage: 16 IU, UNK
     Route: 042
  5. CYCLOPHOSPHAMIDE. [Concomitant]
     Active Substance: CYCLOPHOSPHAMIDE
     Dosage: UNK
  6. VINCRISTINE [Concomitant]
     Active Substance: VINCRISTINE
     Dosage: UNK
  7. ETOPOSIDE. [Concomitant]
     Active Substance: ETOPOSIDE
     Dosage: UNK

REACTIONS (8)
  - Dyspnoea exertional [Recovered/Resolved]
  - Pulmonary toxicity [Recovered/Resolved]
  - Respiratory gas exchange disorder [Recovered/Resolved]
  - Pallor [Recovered/Resolved]
  - Pulmonary function test abnormal [Recovered/Resolved]
  - Restrictive pulmonary disease [Recovered/Resolved]
  - Forced vital capacity decreased [Recovered/Resolved]
  - Fatigue [Recovered/Resolved]
